FAERS Safety Report 4638478-0 (Version None)
Quarter: 2005Q2

REPORT INFORMATION
  Report Type: 
  Country: None (occurrence: None)
  Receive Date: 20050418
  Receipt Date: 20050329
  Transmission Date: 20051028
  Serious: Yes (Death, Hospitalization)
  Sender: FDA-Public Use
  Company Number: FR_050306131

PATIENT
  Age: 74 Year
  Sex: Female

DRUGS (7)
  1. EVISTA [Suspect]
     Indication: OSTEOPOROSIS
     Dosage: 60 MG DAY
  2. LIORESAL [Concomitant]
  3. LEVOTHYROXINE SODIUM [Concomitant]
  4. OROCAL (CALCIUM CARBONATE) [Concomitant]
  5. CIPRALAN [Concomitant]
  6. RILUTEK [Concomitant]
  7. PAROXETINE MESILATE [Concomitant]

REACTIONS (5)
  - ACIDOSIS [None]
  - DYSPNOEA [None]
  - HAEMODYNAMIC INSTABILITY [None]
  - LUNG INFECTION [None]
  - PULMONARY EMBOLISM [None]
